FAERS Safety Report 5469177-3 (Version None)
Quarter: 2007Q3

REPORT INFORMATION
  Report Type: 
  Country: None (occurrence: None)
  Receive Date: 20070820
  Receipt Date: 20070629
  Transmission Date: 20080115
  Serious: No
  Sender: FDA-Public Use
  Company Number: WAES 0707USA00165

PATIENT
  Sex: Female

DRUGS (4)
  1. JANUVIA [Suspect]
     Indication: GLYCOSYLATED HAEMOGLOBIN INCREASED
     Dosage: PO
     Route: 048
  2. ACTOS [Concomitant]
  3. LISINOPRIL [Concomitant]
  4. METFORMIN [Concomitant]

REACTIONS (1)
  - MUSCULAR WEAKNESS [None]
